FAERS Safety Report 20257843 (Version 2)
Quarter: 2022Q1

REPORT INFORMATION
  Report Type: Report from Study
  Country: JP (occurrence: None)
  Receive Date: 20211230
  Receipt Date: 20220110
  Transmission Date: 20220423
  Serious: Yes (Other)
  Sender: FDA-Public Use
  Company Number: JP-Merck Healthcare KGaA-9288714

PATIENT
  Age: 76 Year
  Sex: Female

DRUGS (1)
  1. TEPMETKO [Suspect]
     Active Substance: TEPOTINIB HYDROCHLORIDE
     Indication: Lung adenocarcinoma
     Route: 048

REACTIONS (6)
  - Cardiac tamponade [Unknown]
  - Pneumothorax [Unknown]
  - Cystic lung disease [Unknown]
  - Pleural effusion [Unknown]
  - Condition aggravated [Unknown]
  - Generalised oedema [Unknown]
